FAERS Safety Report 20743653 (Version 4)
Quarter: 2022Q2

REPORT INFORMATION
  Report Type: Spontaneous
  Country: US (occurrence: US)
  Receive Date: 20220425
  Receipt Date: 20220524
  Transmission Date: 20220720
  Serious: Yes (Other)
  Sender: FDA-Public Use
  Company Number: US-VIIV HEALTHCARE LIMITED-US2022066797

PATIENT

DRUGS (1)
  1. TRIUMEQ [Suspect]
     Active Substance: ABACAVIR SULFATE\DOLUTEGRAVIR SODIUM\LAMIVUDINE
     Indication: HIV infection
     Dosage: 1 DF, QD (1 TABLET PER DAY), 600-50-300 TABLET DAILY

REACTIONS (3)
  - Product dose omission issue [Not Recovered/Not Resolved]
  - CD4 lymphocytes decreased [Unknown]
  - Viral load increased [Unknown]

NARRATIVE: CASE EVENT DATE: 20220301
